FAERS Safety Report 8024171 (Version 5)
Quarter: 2013Q1

REPORT INFORMATION
  Report Type: Report from Study
  Country: US (occurrence: US)
  Receive Date: 20110706
  Receipt Date: 20130305
  Transmission Date: 20140127
  Serious: Yes (Hospitalization, Other)
  Sender: FDA-Public Use
  Company Number: US-PFIZER INC-2011148093

PATIENT
  Age: 56 Year
  Sex: Male
  Weight: 89.8 kg

DRUGS (4)
  1. LYRICA [Suspect]
     Indication: NEUROPATHY PERIPHERAL
     Dosage: UNK
  2. LYRICA [Suspect]
     Indication: NEUROPATHY PERIPHERAL
     Dosage: 50 MG, 1X/DAY
     Route: 048
     Dates: start: 2010
  3. LYRICA [Suspect]
     Dosage: 50 MG, 1X/DAY
     Route: 048
     Dates: end: 20130304
  4. NEURONTIN [Suspect]
     Dosage: UNK

REACTIONS (14)
  - Renal failure chronic [Unknown]
  - Carotid artery occlusion [Unknown]
  - Cardiac valve disease [Unknown]
  - Coronary artery occlusion [Unknown]
  - Blood disorder [Unknown]
  - Fluid retention [Unknown]
  - Malaise [Unknown]
  - Abdominal discomfort [Unknown]
  - Gout [Unknown]
  - Fall [Unknown]
  - Blood glucose decreased [Unknown]
  - Musculoskeletal discomfort [Unknown]
  - Pain in extremity [Unknown]
  - Arthropathy [Recovered/Resolved]
